FAERS Safety Report 5098373-2 (Version None)
Quarter: 2006Q3

REPORT INFORMATION
  Report Type: 
  Country: None (occurrence: None)
  Receive Date: 20060906
  Receipt Date: 20060727
  Transmission Date: 20061208
  Serious: Yes (Hospitalization, Other)
  Sender: FDA-Public Use
  Company Number: FR-ABBOTT-06P-056-0339023-00

PATIENT
  Age: 40 Year
  Sex: Female
  Weight: 67 kg

DRUGS (9)
  1. NORVIR [Suspect]
     Indication: HIV INFECTION
     Route: 048
     Dates: start: 20040518, end: 20050705
  2. NORVIR [Suspect]
     Route: 048
     Dates: start: 20051020
  3. ATAZANAVIR [Suspect]
     Indication: HIV INFECTION
     Route: 048
     Dates: start: 20040518, end: 20050705
  4. ATAZANAVIR [Suspect]
     Route: 048
     Dates: start: 20051020
  5. EMTRICITABINE [Suspect]
     Indication: HIV INFECTION
     Route: 048
     Dates: start: 20040803, end: 20050705
  6. EMTRICITABINE [Suspect]
     Route: 048
     Dates: start: 20051020
  7. CITALOPRAM [Concomitant]
     Indication: DRUG USE FOR UNKNOWN INDICATION
  8. BROMAZEPAM [Concomitant]
     Indication: DRUG USE FOR UNKNOWN INDICATION
  9. DIDANOSINE [Concomitant]
     Indication: HIV INFECTION
     Dates: start: 20051020

REACTIONS (5)
  - ABORTION INDUCED [None]
  - CANDIDIASIS [None]
  - HERPES SIMPLEX [None]
  - HYPOPHOSPHATAEMIA [None]
  - OSTEOPENIA [None]
